FAERS Safety Report 19438270 (Version 3)
Quarter: 2021Q3

REPORT INFORMATION
  Report Type: Spontaneous
  Country: US (occurrence: US)
  Receive Date: 20210618
  Receipt Date: 20210728
  Transmission Date: 20211014
  Serious: Yes (Hospitalization, Other)
  Sender: FDA-Public Use
  Company Number: US-PFIZER INC-2021670498

PATIENT
  Age: 60 Year
  Sex: Female
  Weight: 54.42 kg

DRUGS (10)
  1. PREDNISONE. [Concomitant]
     Active Substance: PREDNISONE
     Indication: INFLAMMATION
     Dosage: 5 MG
  2. VITAMIN D3 [Concomitant]
     Active Substance: CHOLECALCIFEROL
     Dosage: UNK
  3. TYLENOL [Concomitant]
     Active Substance: ACETAMINOPHEN
     Indication: PAIN
     Dosage: UNK
  4. XELJANZ [Suspect]
     Active Substance: TOFACITINIB CITRATE
     Indication: RHEUMATOID ARTHRITIS
     Dosage: 10 MG (HALF IN THE MORNING AND HALF AT NIGHT)
     Route: 048
  5. PREDNISONE. [Concomitant]
     Active Substance: PREDNISONE
     Dosage: 20 MG, 2X/DAY
  6. XELJANZ [Suspect]
     Active Substance: TOFACITINIB CITRATE
     Dosage: 5 MG, 2X/DAY (5 MG IN THE MORNING AND 5 MG IN THE EVENING)
     Route: 048
     Dates: start: 20210519
  7. HYDROMORPHONE [Concomitant]
     Active Substance: HYDROMORPHONE
     Dosage: UNK
  8. CALCIUM [Concomitant]
     Active Substance: CALCIUM
     Dosage: UNK
  9. XARELTO [Concomitant]
     Active Substance: RIVAROXABAN
     Dosage: UNK
  10. ATORVASTATIN [Concomitant]
     Active Substance: ATORVASTATIN
     Dosage: UNK

REACTIONS (12)
  - Asthenia [Unknown]
  - Therapeutic product effect decreased [Unknown]
  - Hypotension [Unknown]
  - Influenza like illness [Unknown]
  - Ventricular extrasystoles [Unknown]
  - Near death experience [Unknown]
  - Off label use [Unknown]
  - Malaise [Unknown]
  - Blood sodium decreased [Unknown]
  - Wrong technique in product usage process [Unknown]
  - Haemoglobin decreased [Unknown]
  - Somnolence [Unknown]

NARRATIVE: CASE EVENT DATE: 202106
